FAERS Safety Report 5412942-9 (Version None)
Quarter: 2007Q3

REPORT INFORMATION
  Report Type: 
  Country: None (occurrence: None)
  Receive Date: 20070813
  Receipt Date: 20070801
  Transmission Date: 20080115
  Serious: Yes (Hospitalization)
  Sender: FDA-Public Use
  Company Number: JP-MERCK-0708USA00663

PATIENT
  Age: 50 Year
  Sex: Male

DRUGS (3)
  1. PROPECIA [Suspect]
     Indication: MALE PATTERN BALDNESS
     Route: 048
     Dates: start: 20060801, end: 20061224
  2. [THERAPY UNSPECIFIED] [Concomitant]
     Route: 048
  3. JOBS TEARS [Concomitant]
     Route: 048

REACTIONS (5)
  - BRAIN CONTUSION [None]
  - FALL [None]
  - LOSS OF CONSCIOUSNESS [None]
  - NAUSEA [None]
  - SKIN LACERATION [None]
